FAERS Safety Report 8393374-0 (Version None)
Quarter: 2012Q2

REPORT INFORMATION
  Report Type: 
  Country: None (occurrence: None)
  Receive Date: 20120529
  Receipt Date: 20120516
  Transmission Date: 20120825
  Serious: Yes (Death)
  Sender: FDA-Public Use
  Company Number: MX-FRI-1000030759

PATIENT
  Sex: Male

DRUGS (4)
  1. ANTIHYPERTENSIVES [Concomitant]
     Indication: HYPERTENSION
  2. BLOOD GLUCOSE LOWERING DRUGS, EXCL. INSULIINS [Concomitant]
     Indication: BLOOD GLUCOSE ABNORMAL
  3. ANTIINFECTIVES [Concomitant]
     Indication: INFECTION
  4. MEMANTINE HCL [Suspect]
     Indication: DEMENTIA ALZHEIMER'S TYPE
     Dosage: 20 MG
     Route: 048
     Dates: start: 20120325, end: 20120415

REACTIONS (1)
  - MYOCARDIAL INFARCTION [None]
